FAERS Safety Report 17826121 (Version 1)
Quarter: 2020Q2

REPORT INFORMATION
  Report Type: Spontaneous
  Country: AU (occurrence: AU)
  Receive Date: 20200526
  Receipt Date: 20200526
  Transmission Date: 20200714
  Serious: Yes (Other)
  Sender: FDA-Public Use
  Company Number: AU-ELI_LILLY_AND_COMPANY-AU202005006640

PATIENT
  Age: 46 Year
  Sex: Male

DRUGS (6)
  1. ZOLOFT [Concomitant]
     Active Substance: SERTRALINE HYDROCHLORIDE
     Indication: PRODUCT USED FOR UNKNOWN INDICATION
  2. PROZAC [Suspect]
     Active Substance: FLUOXETINE HYDROCHLORIDE
     Indication: PRODUCT USED FOR UNKNOWN INDICATION
     Dosage: 10 MG, UNKNOWN
     Route: 065
     Dates: start: 2018
  3. VALIUM [Suspect]
     Active Substance: DIAZEPAM
     Indication: PRODUCT USED FOR UNKNOWN INDICATION
     Dosage: 20 MG, UNKNOWN
     Route: 065
  4. ST JOHNS WORT [Concomitant]
     Active Substance: ST. JOHN^S WORT
     Indication: PRODUCT USED FOR UNKNOWN INDICATION
  5. PROTHIADEN [Suspect]
     Active Substance: DOTHIEPIN HYDROCHLORIDE
     Indication: PRODUCT USED FOR UNKNOWN INDICATION
     Dosage: UNK UNK, UNKNOWN
     Route: 065
     Dates: start: 2006
  6. LEXOTAN [Suspect]
     Active Substance: BROMAZEPAM
     Indication: PRODUCT USED FOR UNKNOWN INDICATION
     Dosage: 3 MG, TID
     Route: 065
     Dates: start: 2008

REACTIONS (46)
  - Fatigue [Unknown]
  - Thinking abnormal [Unknown]
  - Night sweats [Unknown]
  - Dizziness [Unknown]
  - Nightmare [Unknown]
  - Disturbance in attention [Unknown]
  - Hot flush [Unknown]
  - Psychiatric symptom [Unknown]
  - Seizure [Unknown]
  - Depression [Unknown]
  - Restless legs syndrome [Unknown]
  - Hypoacusis [Unknown]
  - Confusional state [Unknown]
  - Gait disturbance [Unknown]
  - Violence-related symptom [Unknown]
  - Mania [Unknown]
  - Anxiety [Unknown]
  - Agoraphobia [Unknown]
  - Post-traumatic headache [Unknown]
  - Delirium tremens [Unknown]
  - Paranoia [Unknown]
  - Tachyphrenia [Unknown]
  - Gastrooesophageal reflux disease [Unknown]
  - Obsessive-compulsive disorder [Unknown]
  - Musculoskeletal stiffness [Unknown]
  - Hypertension [Unknown]
  - Dysarthria [Unknown]
  - Photophobia [Unknown]
  - Dry mouth [Unknown]
  - Hypoaesthesia [Unknown]
  - Hyperaesthesia [Unknown]
  - Sensitive skin [Unknown]
  - Vision blurred [Unknown]
  - Drug withdrawal syndrome [Unknown]
  - Nausea [Unknown]
  - Akathisia [Unknown]
  - Suicidal ideation [Unknown]
  - Feeding disorder [Unknown]
  - Dyspnoea [Unknown]
  - Penis disorder [Unknown]
  - Memory impairment [Unknown]
  - Feeling of body temperature change [Unknown]
  - Panic reaction [Unknown]
  - Influenza like illness [Unknown]
  - Irritability [Unknown]
  - Dyskinesia [Unknown]
